FAERS Safety Report 9435039 (Version 1)
Quarter: 2013Q3

REPORT INFORMATION
  Report Type: Report from Study
  Country: CA (occurrence: CA)
  Receive Date: 20130801
  Receipt Date: 20130801
  Transmission Date: 20140515
  Serious: Yes (Hospitalization)
  Sender: FDA-Public Use
  Company Number: PHHY2012CA067091

PATIENT
  Sex: Female

DRUGS (8)
  1. ACLASTA [Suspect]
     Indication: OSTEOPOROSIS
     Dosage: UNK UKN, UNK
     Route: 042
     Dates: start: 20080718
  2. ACLASTA [Suspect]
     Dosage: UNK UKN, UNK
     Route: 042
     Dates: start: 20090805
  3. ACLASTA [Suspect]
     Dosage: UNK UKN, UNK
     Route: 042
     Dates: start: 20100804
  4. ACLASTA [Suspect]
     Dosage: UNK UKN, UNK
     Route: 042
     Dates: start: 20110818
  5. ACLASTA [Suspect]
     Dosage: UNK UKN, UNK
     Route: 042
     Dates: start: 20120802
  6. LIPITOR [Concomitant]
     Dosage: UNK UKN, UNK
  7. TIAZAC [Concomitant]
     Dosage: UNK UKN, UNK
  8. VENTOLIN [Concomitant]
     Dosage: UNK UKN, UNK

REACTIONS (3)
  - Chondrocalcinosis pyrophosphate [Unknown]
  - Arthritis [Unknown]
  - Blood creatinine increased [Recovered/Resolved]
